FAERS Safety Report 14374539 (Version 4)
Quarter: 2018Q2

REPORT INFORMATION
  Report Type: Spontaneous
  Country: JP (occurrence: JP)
  Receive Date: 20180111
  Receipt Date: 20180501
  Transmission Date: 20180711
  Serious: Yes (Death, Hospitalization, Other)
  Sender: FDA-Public Use
  Company Number: JP-BRISTOL-MYERS SQUIBB COMPANY-BMS-2018-002030

PATIENT
  Age: 55 Year
  Sex: Female

DRUGS (10)
  1. DOCETAXEL. [Suspect]
     Active Substance: DOCETAXEL
     Indication: NON-SMALL CELL LUNG CANCER
     Dosage: UNK
     Route: 065
     Dates: start: 20160513, end: 20160712
  2. LOXOPROFEN [Concomitant]
     Active Substance: LOXOPROFEN
     Indication: PRODUCT USED FOR UNKNOWN INDICATION
     Route: 065
  3. OPDIVO [Suspect]
     Active Substance: NIVOLUMAB
     Indication: NON-SMALL CELL LUNG CANCER
     Dosage: 120 MG, QD
     Route: 065
     Dates: start: 20160426
  4. NEXIUM [Concomitant]
     Active Substance: ESOMEPRAZOLE MAGNESIUM
     Indication: PRODUCT USED FOR UNKNOWN INDICATION
     Route: 065
  5. CALONAL [Concomitant]
     Active Substance: ACETAMINOPHEN
     Indication: PRODUCT USED FOR UNKNOWN INDICATION
     Route: 065
  6. DOGMATYL [Concomitant]
     Active Substance: SULPIRIDE
     Indication: PRODUCT USED FOR UNKNOWN INDICATION
     Route: 065
  7. NAIXAN                             /00256201/ [Concomitant]
     Active Substance: NAPROXEN
     Indication: PRODUCT USED FOR UNKNOWN INDICATION
     Route: 065
  8. SOLANAX [Concomitant]
     Active Substance: ALPRAZOLAM
     Indication: PRODUCT USED FOR UNKNOWN INDICATION
     Route: 065
  9. LYRICA [Concomitant]
     Active Substance: PREGABALIN
     Indication: PRODUCT USED FOR UNKNOWN INDICATION
     Route: 065
  10. TRAMAL [Concomitant]
     Active Substance: TRAMADOL
     Indication: PRODUCT USED FOR UNKNOWN INDICATION
     Route: 065

REACTIONS (11)
  - Malignant neoplasm progression [Fatal]
  - Constipation [Not Recovered/Not Resolved]
  - Malaise [Recovered/Resolved]
  - Alopecia [Not Recovered/Not Resolved]
  - Stomatitis [Recovering/Resolving]
  - Pyrexia [Not Recovered/Not Resolved]
  - Asthenia [Unknown]
  - Decreased appetite [Recovered/Resolved]
  - Anaemia [Not Recovered/Not Resolved]
  - Prescribed underdose [Unknown]
  - Chills [Unknown]

NARRATIVE: CASE EVENT DATE: 20160427
